FAERS Safety Report 15927954 (Version 2)
Quarter: 2019Q1

REPORT INFORMATION
  Report Type: Spontaneous
  Country: US (occurrence: US)
  Receive Date: 20190206
  Receipt Date: 20190328
  Transmission Date: 20190417
  Serious: Yes (Hospitalization, Other)
  Sender: FDA-Public Use
  Company Number: US-DSJP-DSU-2017-138424

PATIENT

DRUGS (3)
  1. BENICAR [Suspect]
     Active Substance: OLMESARTAN MEDOXOMIL
     Indication: HYPERTENSION
     Dosage: 40 MG, QD
     Route: 048
     Dates: start: 20041007, end: 20170811
  2. BENICAR [Suspect]
     Active Substance: OLMESARTAN MEDOXOMIL
     Dosage: 20 MG, QD
     Route: 048
     Dates: end: 20170811
  3. BENICAR HCT [Suspect]
     Active Substance: HYDROCHLOROTHIAZIDE\OLMESARTAN MEDOXOMIL
     Indication: HYPERTENSION
     Dosage: 20/12.5 MG, UNK
     Dates: start: 20041007, end: 20170811

REACTIONS (8)
  - Sprue-like enteropathy [Not Recovered/Not Resolved]
  - Gastrooesophageal reflux disease [Recovering/Resolving]
  - Anxiety [Unknown]
  - Chronic kidney disease [Unknown]
  - Hypotension [Unknown]
  - Gastrointestinal haemorrhage [Recovering/Resolving]
  - Gastrointestinal motility disorder [Unknown]
  - Renal failure [Not Recovered/Not Resolved]

NARRATIVE: CASE EVENT DATE: 20051118
